FAERS Safety Report 21145312 (Version 2)
Quarter: 2022Q4

REPORT INFORMATION
  Report Type: Spontaneous
  Country: IT (occurrence: IT)
  Receive Date: 20220729
  Receipt Date: 20221201
  Transmission Date: 20230113
  Serious: Yes (Hospitalization)
  Sender: FDA-Public Use
  Company Number: None

PATIENT
  Age: 78 Year
  Sex: Female

DRUGS (7)
  1. DULOXETINE [Suspect]
     Active Substance: DULOXETINE
     Indication: Product used for unknown indication
     Dosage: DULOXETINA, UNIT DOSE: 60 MG, FREQUENCY TIME : 24 HRS
  2. DULOXETINE [Suspect]
     Active Substance: DULOXETINE
     Dosage: 30 MG: 1 TABLET + 60 MG 1 TABLET H8, FREQUENCY TIME : 24 HRS, UNIT DOSE:30 MG, DULOXETINA
  3. EDOXABAN TOSYLATE [Suspect]
     Active Substance: EDOXABAN TOSYLATE
     Indication: Product used for unknown indication
     Dosage: 60 MG:  1/2 CP H 8, UNIT DOSE: 30 MG , FREQUENCY TIME : 24 HRS
  4. PLAQUENIL [Suspect]
     Active Substance: HYDROXYCHLOROQUINE SULFATE
     Indication: Product used for unknown indication
     Dosage: 200 MG 1CP H8-20, UNIT DOSE: 200 MG,
  5. METOPROLOL [Concomitant]
     Active Substance: METOPROLOL
     Indication: Product used for unknown indication
     Dosage: 100 MG 1/4 CP H8-20, UNIT DOSE: 25 MG, FREQUENCY TIME : 12 HRS
  6. NEURONTIN [Concomitant]
     Active Substance: GABAPENTIN
     Indication: Product used for unknown indication
     Dosage: 100 MG 1CP H12-20, UNIT DOSE: 100 MG, FREQUENCY TIME : 12 HRS
  7. LASIX [Concomitant]
     Active Substance: FUROSEMIDE
     Indication: Product used for unknown indication
     Dosage: 25 MG 1 TABLET 8 HOURS, , FREQUENCY TIME : 24 HRS

REACTIONS (3)
  - Metabolic alkalosis [Recovering/Resolving]
  - Syncope [Recovered/Resolved]
  - Torsade de pointes [Recovered/Resolved]

NARRATIVE: CASE EVENT DATE: 20220524
